FAERS Safety Report 22077035 (Version 1)
Quarter: 2023Q1

REPORT INFORMATION
  Report Type: Spontaneous
  Country: US (occurrence: US)
  Receive Date: 20230309
  Receipt Date: 20230309
  Transmission Date: 20230418
  Serious: Yes (Other)
  Sender: FDA-Public Use
  Company Number: US-STRIDES ARCOLAB LIMITED-2022SP017486

PATIENT
  Sex: Male

DRUGS (24)
  1. METHOTREXATE [Suspect]
     Active Substance: METHOTREXATE
     Indication: Non-Hodgkin^s lymphoma stage IV
     Dosage: UNK; (HIGH DOSE)
     Route: 065
  2. METHOTREXATE [Suspect]
     Active Substance: METHOTREXATE
     Indication: Marginal zone lymphoma stage IV
     Dosage: 2500 MILLIGRAM/SQ. METER, CYCLICAL; (ON DAY 1 OF THE WEEKS 1, 3, 5, 7 AND 9; FOR 2 CYCLES); (INFUSIO
     Route: 042
  3. METHOTREXATE [Suspect]
     Active Substance: METHOTREXATE
     Dosage: 12 MILLIGRAM, CYCLICAL; (ON DAY 1 OF WEEK 2, 4, 6 AND 8; FOR 2 CYCLES)
     Route: 037
  4. PREDNISOLONE [Suspect]
     Active Substance: PREDNISOLONE
     Indication: Non-Hodgkin^s lymphoma stage IV
     Dosage: UNK, CYCLICAL; (AS A PART OF R-CHOP REGIMEN FOR 6 CYCLES)
     Route: 065
  5. PREDNISOLONE [Suspect]
     Active Substance: PREDNISOLONE
     Indication: Marginal zone lymphoma stage IV
  6. DOXORUBICIN [Suspect]
     Active Substance: DOXORUBICIN
     Indication: Non-Hodgkin^s lymphoma stage IV
     Dosage: UNK, CYCLICAL; (AS A PART OF R-CHOP REGIMEN FOR 6 CYCLES)
     Route: 065
  7. DOXORUBICIN [Suspect]
     Active Substance: DOXORUBICIN
     Indication: Marginal zone lymphoma stage IV
  8. DEXAMETHASONE [Suspect]
     Active Substance: DEXAMETHASONE
     Indication: Non-Hodgkin^s lymphoma stage IV
     Dosage: 16 MILLIGRAM, CYCLICAL; (CYCLICAL; FOR WEEK 1); PER DAY
     Route: 048
  9. DEXAMETHASONE [Suspect]
     Active Substance: DEXAMETHASONE
     Indication: Marginal zone lymphoma stage IV
     Dosage: 12 MILLIGRAM, CYCLICAL; PER DAY; (CYCLICAL; FOR WEEK 2)
     Route: 048
  10. DEXAMETHASONE [Suspect]
     Active Substance: DEXAMETHASONE
     Dosage: 8 MILLIGRAM, CYCLICAL; PER DAY; (CYCLICAL; FOR WEEK 3)
     Route: 048
  11. DEXAMETHASONE [Suspect]
     Active Substance: DEXAMETHASONE
     Dosage: 6 MILLIGRAM, CYCLICAL; PER DAY; (CYCLICAL; FOR WEEK 4)
     Route: 048
  12. DEXAMETHASONE [Suspect]
     Active Substance: DEXAMETHASONE
     Dosage: 4 MILLIGRAM, CYCLICAL; PER DAY; (CYCLICAL; FOR WEEK 5)
     Route: 048
  13. DEXAMETHASONE [Suspect]
     Active Substance: DEXAMETHASONE
     Dosage: 2 MILLIGRAM, CYCLICAL; PER DAY; 9CYCLICAL; FOR WEEK 6)
     Route: 048
  14. RITUXIMAB [Suspect]
     Active Substance: RITUXIMAB
     Indication: Non-Hodgkin^s lymphoma stage IV
     Dosage: UNK UNK, CYCLICAL; (AS A PART OF R-CHOP REGIMEN FOR 6 CYCLES)
     Route: 065
  15. RITUXIMAB [Suspect]
     Active Substance: RITUXIMAB
     Indication: Marginal zone lymphoma stage IV
  16. CYCLOPHOSPHAMIDE [Suspect]
     Active Substance: CYCLOPHOSPHAMIDE
     Indication: Non-Hodgkin^s lymphoma stage IV
     Dosage: UNK UNK, CYCLICAL; (AS A PART OF R-CHOP REGIMEN FOR 6 CYCLES)
     Route: 065
  17. CYCLOPHOSPHAMIDE [Suspect]
     Active Substance: CYCLOPHOSPHAMIDE
     Indication: Marginal zone lymphoma stage IV
  18. VINCRISTINE [Suspect]
     Active Substance: VINCRISTINE
     Indication: Non-Hodgkin^s lymphoma stage IV
     Dosage: UNK, CYCLICAL; (AS A PART OF R-CHOP REGIMEN FOR 6 CYCLES)
     Route: 065
  19. VINCRISTINE [Suspect]
     Active Substance: VINCRISTINE
     Indication: Marginal zone lymphoma stage IV
     Dosage: 1.4 MILLIGRAM/SQ. METER; (ON DAY 1 OF WEEKS 1, 3, 5, 7 AND 9)
     Route: 042
  20. PROCARBAZINE [Suspect]
     Active Substance: PROCARBAZINE
     Indication: Non-Hodgkin^s lymphoma stage IV
     Dosage: 100 MILLIGRAM/SQ. METER; (ON DAY 1-7 OF WEEKS 1,5 AND 9)
     Route: 048
  21. PROCARBAZINE [Suspect]
     Active Substance: PROCARBAZINE
     Indication: Marginal zone lymphoma stage IV
  22. CYTARABINE [Suspect]
     Active Substance: CYTARABINE
     Indication: Non-Hodgkin^s lymphoma stage IV
     Dosage: 3000 MILLIGRAM, CYCLICAL; PER DAY; (CYCLICAL; ON DAY 1 AND DAY 2 FOR WEEK 16 AND WEEK 19)
     Route: 048
  23. LEUCOVORIN [Concomitant]
     Active Substance: LEUCOVORIN
     Indication: Chemotherapy side effect prophylaxis
     Dosage: 20 MILLIGRAM, CYCLICAL; (6 HOURS); (CYCLICAL; FOR 12 DOSE ON DAY 1 OF WEEKS 1, 3, 5, 7 AND 9 AFTER 2
     Route: 048
  24. LEUCOVORIN [Concomitant]
     Active Substance: LEUCOVORIN
     Dosage: 10 MILLIGRAM, CYCLICAL; (6 HOURS); (CYCLICAL; FOR A TOTAL OF 8 DOSES AFTER STARTING INTRATHECAL METH
     Route: 048

REACTIONS (1)
  - Drug ineffective [Unknown]
